FAERS Safety Report 7364060-0 (Version None)
Quarter: 2011Q1

REPORT INFORMATION
  Report Type: 
  Country: None (occurrence: None)
  Receive Date: 20110321
  Receipt Date: 20110225
  Transmission Date: 20110831
  Serious: No
  Sender: FDA-Public Use
  Company Number: US-BAYER-2011-019235

PATIENT
  Sex: Male
  Weight: 95.238 kg

DRUGS (11)
  1. ALEVE (CAPLET) [Suspect]
     Indication: TOOTHACHE
     Dosage: 1 DF, ONCE, BOTTLE COUNT 40CT
     Dates: start: 20110204, end: 20110204
  2. SIMVASTATIN [Concomitant]
  3. ASPIRIN [Concomitant]
  4. FISH OIL [Concomitant]
  5. ENALAPRIL [Concomitant]
  6. METOPROLOL SUCCINATE [Concomitant]
  7. UNCODEABLE ^UNCLASSIFIABLE^ [Concomitant]
  8. PREVACID [Concomitant]
  9. UNCODEABLE ^UNCLASSIFIABLE^ [Concomitant]
  10. MULTI-VITAMIN [Concomitant]
  11. ALEVE (CAPLET) [Suspect]
     Indication: ARTHRALGIA
     Dosage: 1 DF, ONCE, BOTTLE COUNT 40CT
     Dates: start: 20110201

REACTIONS (2)
  - TOOTHACHE [None]
  - ARTHRALGIA [None]
